FAERS Safety Report 13577058 (Version 6)
Quarter: 2017Q4

REPORT INFORMATION
  Report Type: Spontaneous
  Country: US (occurrence: US)
  Receive Date: 20170524
  Receipt Date: 20171127
  Transmission Date: 20180320
  Serious: Yes (Hospitalization, Other)
  Sender: FDA-Public Use
  Company Number: US-PFIZER INC-2017222891

PATIENT
  Age: 70 Year
  Sex: Female
  Weight: 68.49 kg

DRUGS (22)
  1. FASLODEX [Concomitant]
     Active Substance: FULVESTRANT
     Indication: BREAST CANCER
     Dosage: 500 MG, UNK (OF 4 W)
     Dates: start: 20170309
  2. SYNTHROID [Concomitant]
     Active Substance: LEVOTHYROXINE SODIUM
     Indication: HYPOTHYROIDISM
     Dosage: 75 UG, DAILY
  3. PROBIOTIC [Concomitant]
     Active Substance: PROBIOTICS NOS
     Dosage: UNK, DAILY (1 TABLET)
     Route: 048
  4. IBRANCE [Suspect]
     Active Substance: PALBOCICLIB
     Dosage: 100 MG, CYCLIC (D 1-14 OF 21 D)
     Dates: start: 20170802
  5. SYNTHROID [Concomitant]
     Active Substance: LEVOTHYROXINE SODIUM
     Dosage: 75 UG, 1X/DAY ( 30 MINUTES BEFORE BREAKFAST)
     Route: 048
     Dates: start: 20161215
  6. OSCAL D [Concomitant]
     Active Substance: CALCIUM CARBONATE\CHOLECALCIFEROL
     Dosage: 1 DF, 1X/DAY [CALCIUM CARBONATE: 250 MG]/[VITAMIN D3: 125 UNIT] (DAILY WITH BREAKFAST)
     Route: 048
     Dates: end: 20170608
  7. COD LIVER OIL [Concomitant]
     Active Substance: COD LIVER OIL
     Dosage: UNK
     Route: 048
  8. COLLAGENASE SANTYL [Concomitant]
     Active Substance: COLLAGENASE CLOSTRIDIUM HISTOLYTICUM
     Dosage: UNK, DAILY (APPLY 1 APPLICATION FOR 10 DAYS)
     Route: 061
     Dates: start: 20170414, end: 20170424
  9. IBRANCE [Suspect]
     Active Substance: PALBOCICLIB
     Indication: BREAST CANCER METASTATIC
     Dosage: 125 MG, CYCLIC (THREE ON AND ONE OFF)
     Route: 048
     Dates: start: 201507
  10. VITAMIN D3 [Concomitant]
     Active Substance: CHOLECALCIFEROL
     Dosage: 2000 IU, DAILY
     Route: 048
  11. VALISONE [Concomitant]
     Active Substance: BETAMETHASONE VALERATE
     Dosage: UNK, 2X/DAY (APPLY 1 APPLICATION)
     Route: 061
     Dates: start: 20170413, end: 20170513
  12. VITAMIN B12 [Concomitant]
     Active Substance: CYANOCOBALAMIN
     Dosage: 1000 UG, DAILY
     Route: 048
     Dates: start: 20150724
  13. SIMETHICONE (DIMETHICONE) [Concomitant]
     Active Substance: DIMETHICONE
     Dosage: 80 MG, AS NEEDED (EVERY 6 (SIX) HOURS)
     Route: 048
     Dates: start: 20170414, end: 20170417
  14. EUCERIN [Concomitant]
     Active Substance: ENSULIZOLE\EUCERIN\OCTINOXATE\OCTISALATE\TITANIUM DIOXIDE\ZINC OXIDE
     Dosage: UNK, AS NEEDED (APPLY 1 APPLICATION)
     Route: 061
     Dates: start: 20170414, end: 20170417
  15. IBRANCE [Suspect]
     Active Substance: PALBOCICLIB
     Dosage: 125 MG, CYCLIC (THREE ON AND ONE OFF)
     Route: 048
     Dates: start: 2016
  16. IBRANCE [Suspect]
     Active Substance: PALBOCICLIB
     Dosage: 125 MG, CYCLIC (DAILY X 21 D F/B 7 DAY REST)
     Route: 048
     Dates: end: 20170410
  17. SILVADENE [Concomitant]
     Active Substance: SILVER SULFADIAZINE
     Dosage: UNK, DAILY (1 APPLICATION)
     Route: 061
     Dates: start: 20170403, end: 20170503
  18. LIDEX [Concomitant]
     Active Substance: FLUOCINONIDE
     Dosage: UNK, AS NEEDED (APPLY 1 APPLICATION)
     Route: 061
     Dates: start: 20160816, end: 20170417
  19. IBRANCE [Suspect]
     Active Substance: PALBOCICLIB
     Dosage: 125 MG, CYCLIC (THREE ON AND ONE OFF)
     Route: 048
  20. XGEVA [Concomitant]
     Active Substance: DENOSUMAB
     Dosage: 120 MG, MONTHLY (20 MG INTO THE SKIN EVERY 30 DAYS)
     Route: 058
  21. IBRANCE [Suspect]
     Active Substance: PALBOCICLIB
     Dosage: 125 MG, CYCLIC (DAILY X 21 D F/B 7 DAY REST)
     Route: 048
     Dates: start: 20150729
  22. FEMARA [Concomitant]
     Active Substance: LETROZOLE
     Dosage: 2.5 MG, DAILY (1 TABLET)
     Route: 048
     Dates: start: 20161230, end: 20170421

REACTIONS (10)
  - Food intolerance [Unknown]
  - Asthenia [Unknown]
  - Diarrhoea [Recovering/Resolving]
  - Pyrexia [Recovering/Resolving]
  - Blister [Unknown]
  - Dysgeusia [Recovering/Resolving]
  - Skin disorder [Recovered/Resolved]
  - Immunodeficiency [Unknown]
  - Nausea [Recovering/Resolving]
  - Febrile neutropenia [Unknown]

NARRATIVE: CASE EVENT DATE: 20170409
